FAERS Safety Report 8004463-4 (Version None)
Quarter: 2011Q4

REPORT INFORMATION
  Report Type: 
  Country: None (occurrence: None)
  Receive Date: 20111221
  Receipt Date: 20111221
  Transmission Date: 20120403
  Serious: Yes (Hospitalization)
  Sender: FDA-Public Use
  Company Number: None

PATIENT
  Age: 48 Year
  Sex: Female
  Weight: 98.4 kg

DRUGS (17)
  1. MORPHINE [Suspect]
     Indication: FIBROMYALGIA
     Dosage: 60 MG BID PO CHRONIC
     Route: 048
  2. MORPHINE [Suspect]
     Indication: PAIN
     Dosage: 60 MG BID PO CHRONIC
     Route: 048
  3. FISH OIL [Concomitant]
  4. PERCOCET [Suspect]
     Indication: PAIN
     Dosage: Q4H PRN PO CHRONIC
     Route: 048
  5. MELOXICAM [Suspect]
     Indication: PAIN
     Dosage: Q4H PRN PO CHRONIC
  6. VALTREX [Concomitant]
  7. TRAZODONE HCL [Suspect]
     Indication: PAIN
     Dosage: Q4H PRN PO CHRONIC
  8. ADVAIR DISKUS 100/50 [Concomitant]
  9. ZANAFLEX [Suspect]
     Indication: PAIN
     Dosage: Q4H PRN PO CHRONIC
  10. VALIUM [Concomitant]
  11. PREDNISONE TAB [Concomitant]
  12. ROPINIROLE [Suspect]
     Indication: PAIN
     Dosage: Q4H PRN PO CHRONIC
  13. LEVOTHYROXINE SODIUM [Concomitant]
  14. VITAMIN D [Concomitant]
  15. NEURONTIN [Suspect]
     Indication: PAIN
     Dosage: Q4H PRN PO CHRONIC
  16. KEPPRA [Suspect]
     Indication: PAIN
     Dosage: Q4H PRN PO CHRONIC
  17. BENTYL [Concomitant]

REACTIONS (8)
  - DEPRESSED LEVEL OF CONSCIOUSNESS [None]
  - DELIRIUM [None]
  - SOMNOLENCE [None]
  - AGITATION [None]
  - AGGRESSION [None]
  - UNRESPONSIVE TO STIMULI [None]
  - HYPOPNOEA [None]
  - SCREAMING [None]
